APPROVED DRUG PRODUCT: SODIUM CHLORIDE 0.9% IN PLASTIC CONTAINER
Active Ingredient: SODIUM CHLORIDE
Strength: 180MG/20ML (9MG/ML)
Dosage Form/Route: SOLUTION;INJECTION
Application: N019218 | Product #002
Applicant: ABBOTT LABORATORIES HOSP PRODUCTS DIV
Approved: Apr 30, 1985 | RLD: No | RS: No | Type: DISCN